FAERS Safety Report 6474129-0 (Version None)
Quarter: 2009Q4

REPORT INFORMATION
  Report Type: 
  Country: None (occurrence: None)
  Receive Date: 20091204
  Receipt Date: 20091103
  Transmission Date: 20100525
  Serious: No
  Sender: FDA-Public Use
  Company Number: US-BAYER-200938474NA

PATIENT
  Age: 18 Year
  Sex: Female
  Weight: 65 kg

DRUGS (1)
  1. MIRENA [Suspect]
     Indication: DRUG USE FOR UNKNOWN INDICATION
     Dosage: CONTINUOUS
     Route: 015
     Dates: start: 20090112, end: 20091020

REACTIONS (3)
  - DEVICE EXPULSION [None]
  - PAIN [None]
  - VAGINAL HAEMORRHAGE [None]
